FAERS Safety Report 5938198-6 (Version None)
Quarter: 2008Q4

REPORT INFORMATION
  Report Type: 
  Country: None (occurrence: None)
  Receive Date: 20081031
  Receipt Date: 20081017
  Transmission Date: 20090506
  Serious: Yes (Other)
  Sender: FDA-Public Use
  Company Number: JP-GENENTECH-270393

PATIENT
  Sex: Male
  Weight: 48 kg

DRUGS (11)
  1. BEVACIZUMAB [Suspect]
     Indication: COLORECTAL CANCER METASTATIC
     Dosage: 5 MG/KG, UNK
     Route: 042
     Dates: start: 20070926
  2. IRINOTECAN HYDROCHLORIDE [Suspect]
     Indication: COLORECTAL CANCER METASTATIC
     Dosage: 120 MG/M2, UNK
     Route: 042
     Dates: start: 20070926, end: 20080226
  3. IRINOTECAN HYDROCHLORIDE [Suspect]
     Dosage: 132 MG/M2, UNK
     Dates: start: 20080115
  4. IRINOTECAN HYDROCHLORIDE [Suspect]
     Dosage: 144 MG/M2, UNK
     Dates: start: 20080226
  5. FLUOROURACIL [Suspect]
     Indication: COLORECTAL CANCER METASTATIC
     Dosage: 400 MG/M2, UNK
     Route: 042
     Dates: start: 20070926, end: 20080427
  6. FLUOROURACIL [Suspect]
     Dosage: 2300 MG/M2, UNK
  7. FLUOROURACIL [Suspect]
     Dosage: 2400 MG/M2, UNK
     Dates: start: 20080226
  8. LEUCOVORIN CALCIUM [Suspect]
     Indication: COLORECTAL CANCER METASTATIC
     Dosage: 200 MG/M2, UNK
     Route: 042
     Dates: start: 20070926, end: 20080425
  9. ELPLAT [Suspect]
     Indication: COLORECTAL CANCER METASTATIC
     Dosage: 85 MG/M2, UNK
     Route: 042
     Dates: start: 20080319, end: 20080425
  10. DEXAMETHASONE [Concomitant]
     Indication: DRUG USE FOR UNKNOWN INDICATION
     Dosage: UNK
     Dates: start: 20070926, end: 20080404
  11. WARFARIN SODIUM [Concomitant]
     Indication: DRUG USE FOR UNKNOWN INDICATION
     Dosage: UNK
     Dates: start: 20070926, end: 20080404

REACTIONS (1)
  - NEUTROPHIL COUNT DECREASED [None]
